FAERS Safety Report 8269171-3 (Version None)
Quarter: 2012Q2

REPORT INFORMATION
  Report Type: 
  Country: None (occurrence: None)
  Receive Date: 20120409
  Receipt Date: 20120329
  Transmission Date: 20120825
  Serious: Yes (Other)
  Sender: FDA-Public Use
  Company Number: US-ASTRAZENECA-2011SE49555

PATIENT
  Age: 64 Year
  Sex: Female
  Weight: 64.9 kg

DRUGS (22)
  1. SEROQUEL XR [Suspect]
     Indication: SLEEP DISORDER
     Dosage: 300 MG ONCE
     Route: 048
     Dates: start: 20010101
  2. SEROQUEL XR [Suspect]
     Route: 048
  3. NAPROXEN [Concomitant]
     Indication: PAIN
     Route: 048
     Dates: start: 20110501
  4. SYMBICORT [Concomitant]
     Dosage: 160 MCG, PRN
     Route: 055
  5. SIMVALTA [Concomitant]
     Indication: ANXIETY
     Dosage: 90 MG ONCE
     Route: 048
     Dates: start: 20050101
  6. CRESTOR [Concomitant]
     Route: 048
  7. SIMVALTA [Concomitant]
     Route: 048
     Dates: start: 20081201
  8. TRAZODONE HCL [Concomitant]
  9. TRAZODONE HCL [Concomitant]
     Dates: start: 20081201
  10. PLONACEPAM [Concomitant]
     Indication: NERVOUS SYSTEM DISORDER
     Route: 048
     Dates: start: 20050101
  11. SIMVALTA [Concomitant]
     Route: 048
     Dates: start: 20081201
  12. CYMBALTA [Concomitant]
  13. TRAZODONE HCL [Concomitant]
  14. XANAX [Concomitant]
     Dosage: ONE TO TWO TABLETS DAILY
  15. ACETAMINOPHEN AND HYDROCODONE BITARTRATE [Concomitant]
     Indication: PAIN
     Dosage: 7.5-500 TID (THREE TIMES A DAY)
     Route: 048
     Dates: start: 20090101
  16. PLONACEPAM [Concomitant]
     Indication: BIPOLAR DISORDER
     Route: 048
     Dates: start: 20050101
  17. VICODIN [Concomitant]
  18. OXYCODONE HCL AND ACETAMINOPHEN [Concomitant]
     Dosage: 5/325 MG THREE TIMES A DAY
  19. CLONAZEPAM [Concomitant]
  20. SEROQUEL XR [Suspect]
     Route: 048
  21. SIMVALTA [Concomitant]
     Indication: BIPOLAR DISORDER
     Dosage: 90 MG ONCE
     Route: 048
     Dates: start: 20050101
  22. TAGAMET HB [Concomitant]
     Dosage: 200, 2-6 DAILY

REACTIONS (31)
  - HEARING IMPAIRED [None]
  - WEIGHT DECREASED [None]
  - DEPRESSION [None]
  - BIPOLAR DISORDER [None]
  - GASTRITIS [None]
  - PARAESTHESIA [None]
  - TREMOR [None]
  - OFF LABEL USE [None]
  - ARTHRALGIA [None]
  - DIARRHOEA [None]
  - APHAGIA [None]
  - DYSPHAGIA [None]
  - ARTERIAL INSUFFICIENCY [None]
  - ARTERIOSCLEROSIS [None]
  - NAUSEA [None]
  - ANXIETY [None]
  - VOMITING [None]
  - DIZZINESS [None]
  - INTENTIONAL DRUG MISUSE [None]
  - OSTEOPOROSIS [None]
  - CHEST PAIN [None]
  - COUGH [None]
  - PALPITATIONS [None]
  - ABDOMINAL PAIN UPPER [None]
  - FALL [None]
  - BREAST CANCER [None]
  - SUICIDAL IDEATION [None]
  - OSTEOARTHRITIS [None]
  - LOSS OF CONSCIOUSNESS [None]
  - INSOMNIA [None]
  - DYSPNOEA [None]
